FAERS Safety Report 10065492 (Version 1)
Quarter: 2014Q2

REPORT INFORMATION
  Report Type: Report from Study
  Country: MX (occurrence: MX)
  Receive Date: 20140408
  Receipt Date: 20140408
  Transmission Date: 20141212
  Serious: Yes (Other)
  Sender: FDA-Public Use
  Company Number: PHHY2014MX042000

PATIENT
  Age: 59 Year
  Sex: Male

DRUGS (4)
  1. CO-DIOVAN [Suspect]
     Indication: HYPERTENSION
     Dosage: 1 DF (160/25 MG), DAILY
     Route: 048
     Dates: end: 2011
  2. CO-DIOVAN [Suspect]
     Dosage: 2 DF (320/12.5 MG), DAILY
     Route: 048
     Dates: start: 2011
  3. GALVUS MET [Suspect]
     Indication: DIABETES MELLITUS
     Dosage: 2 DF (500/50 MG), DAILY
     Route: 048
     Dates: start: 2011
  4. CIALIS [Concomitant]
     Dosage: UNK UKN, PRN
     Dates: start: 2009

REACTIONS (4)
  - Diabetic neuropathy [Not Recovered/Not Resolved]
  - Accident [Recovered/Resolved with Sequelae]
  - Peripheral vascular disorder [Recovering/Resolving]
  - Haemorrhoids [Not Recovered/Not Resolved]
